FAERS Safety Report 6257109-X (Version None)
Quarter: 2009Q3

REPORT INFORMATION
  Report Type: 
  Country: None (occurrence: None)
  Receive Date: 20090706
  Receipt Date: 20090624
  Transmission Date: 20100115
  Serious: Yes (Hospitalization)
  Sender: FDA-Public Use
  Company Number: B0581340A

PATIENT
  Age: 59 Year
  Sex: Female

DRUGS (6)
  1. AMOXIL [Suspect]
     Indication: DRUG USE FOR UNKNOWN INDICATION
     Route: 065
     Dates: start: 20080123, end: 20080125
  2. KLACID [Suspect]
     Indication: DRUG USE FOR UNKNOWN INDICATION
     Route: 065
     Dates: start: 20080123, end: 20080125
  3. NEXIUM [Suspect]
     Indication: DRUG USE FOR UNKNOWN INDICATION
     Route: 065
     Dates: start: 20080123, end: 20080125
  4. CEPHALEXIN [Suspect]
     Indication: DRUG USE FOR UNKNOWN INDICATION
     Route: 065
     Dates: start: 20081115
  5. CEFTRIAXONE [Concomitant]
     Route: 065
  6. METRONIDAZOLE [Concomitant]
     Route: 065

REACTIONS (5)
  - AUTOIMMUNE HEPATITIS [None]
  - CHOLESTASIS [None]
  - EOSINOPHILIA [None]
  - HEPATIC FAILURE [None]
  - NECROSIS [None]
